FAERS Safety Report 5894248-7 (Version None)
Quarter: 2008Q3

REPORT INFORMATION
  Report Type: 
  Country: None (occurrence: None)
  Receive Date: 20080923
  Receipt Date: 20080313
  Transmission Date: 20090109
  Serious: No
  Sender: FDA-Public Use
  Company Number: US-ASTRAZENECA-2008UW05087

PATIENT
  Age: 38 Year
  Sex: Male
  Weight: 80.7 kg

DRUGS (2)
  1. SEROQUEL [Suspect]
     Indication: GRAND MAL CONVULSION
     Route: 048
  2. KEPPRA [Concomitant]

REACTIONS (2)
  - FEELING ABNORMAL [None]
  - SOMNOLENCE [None]
